FAERS Safety Report 7356384-8 (Version None)
Quarter: 2011Q1

REPORT INFORMATION
  Report Type: 
  Country: None (occurrence: None)
  Receive Date: 20110316
  Receipt Date: 20110303
  Transmission Date: 20110831
  Serious: Yes (Hospitalization)
  Sender: FDA-Public Use
  Company Number: BR-ELI_LILLY_AND_COMPANY-BR201103003287

PATIENT
  Sex: Male

DRUGS (4)
  1. INSULIN HUMAN [Suspect]
     Indication: DIABETES MELLITUS
     Dosage: 30 IU, 2/D
     Route: 065
     Dates: start: 20080101
  2. VIAGRA [Concomitant]
     Dosage: 50 MG, UNKNOWN
     Route: 065
     Dates: start: 20040101
  3. ORAL ANTIDIABETICS [Concomitant]
     Indication: DIABETES MELLITUS
     Dosage: UNK, UNKNOWN
     Route: 065
  4. SILDENAFIL CITRATE [Concomitant]
     Dosage: 50 MG, UNKNOWN
     Route: 065

REACTIONS (2)
  - HOSPITALISATION [None]
  - DRUG INEFFECTIVE [None]
